FAERS Safety Report 8637739 (Version 5)
Quarter: 2014Q3

REPORT INFORMATION
  Report Type: Spontaneous
  Country: US (occurrence: US)
  Receive Date: 20120627
  Receipt Date: 20140926
  Transmission Date: 20150326
  Serious: Yes (Life-Threatening, Hospitalization)
  Sender: FDA-Public Use
  Company Number: US-BAYER-2012-062292

PATIENT
  Age: 49 Year
  Sex: Female
  Weight: 79.37 kg

DRUGS (30)
  1. YASMIN [Suspect]
     Active Substance: DROSPIRENONE\ETHINYL ESTRADIOL
     Indication: PREMENSTRUAL SYNDROME
  2. PROPOXYPHENE [Concomitant]
     Active Substance: PROPOXYPHENE
     Dosage: 650 MG, UNK
     Route: 048
  3. SYMBYAX [Concomitant]
     Active Substance: FLUOXETINE HYDROCHLORIDE\OLANZAPINE
     Indication: DEPRESSION
  4. INSULIN [Concomitant]
     Active Substance: INSULIN NOS
     Indication: BLOOD GLUCOSE INCREASED
  5. ADVIL [Concomitant]
     Active Substance: IBUPROFEN
  6. ASTEPRO [Concomitant]
     Active Substance: AZELASTINE HYDROCHLORIDE
     Dosage: 0.15 %, UNK
     Route: 045
     Dates: start: 20100311
  7. BUMETANIDE. [Concomitant]
     Active Substance: BUMETANIDE
     Dosage: 2 MG, BID
     Route: 048
  8. YASMIN [Suspect]
     Active Substance: DROSPIRENONE\ETHINYL ESTRADIOL
     Indication: CONTRACEPTION
     Dosage: UNK
     Dates: start: 2003, end: 2010
  9. OCELLA [Suspect]
     Active Substance: DROSPIRENONE\ETHINYL ESTRADIOL
     Indication: ACNE
     Dosage: UNK
     Dates: start: 2003, end: 2010
  10. BETAMETHASONE [Concomitant]
     Active Substance: BETAMETHASONE
     Dosage: UNK UNK, BID
     Route: 061
  11. EXFORGE [Concomitant]
     Active Substance: AMLODIPINE BESYLATE\VALSARTAN
     Dosage: DAILY
     Route: 048
  12. OCELLA [Suspect]
     Active Substance: DROSPIRENONE\ETHINYL ESTRADIOL
     Indication: PREMENSTRUAL SYNDROME
  13. BUMEX [Concomitant]
     Active Substance: BUMETANIDE
     Indication: OEDEMA
  14. IMITREX [Concomitant]
     Active Substance: SUMATRIPTAN\SUMATRIPTAN SUCCINATE
  15. NORCO [Concomitant]
     Active Substance: ACETAMINOPHEN\HYDROCODONE BITARTRATE
  16. ALBUTEROL. [Concomitant]
     Active Substance: ALBUTEROL
  17. LYRICA [Concomitant]
     Active Substance: PREGABALIN
     Dosage: 100 MG, QID
     Route: 048
  18. SUMATRIPTAN [Concomitant]
     Active Substance: SUMATRIPTAN
  19. TRAZODONE [Concomitant]
     Active Substance: TRAZODONE HYDROCHLORIDE
     Dosage: 100 MG, PRN BEDTIME
     Route: 048
  20. LEVOPHED [Concomitant]
     Active Substance: NOREPINEPHRINE BITARTRATE
  21. PRANDIN [Concomitant]
     Active Substance: REPAGLINIDE
     Dosage: 1 MG, TID
  22. LORAZEPAM. [Concomitant]
     Active Substance: LORAZEPAM
     Dosage: 1 MG, QID
  23. NEXIUM [Concomitant]
     Active Substance: ESOMEPRAZOLE MAGNESIUM
  24. BYETTA [Concomitant]
     Active Substance: EXENATIDE
  25. YASMIN [Suspect]
     Active Substance: DROSPIRENONE\ETHINYL ESTRADIOL
     Indication: MENSTRUAL CYCLE MANAGEMENT
  26. YASMIN [Suspect]
     Active Substance: DROSPIRENONE\ETHINYL ESTRADIOL
     Indication: HORMONE REPLACEMENT THERAPY
  27. YASMIN [Suspect]
     Active Substance: DROSPIRENONE\ETHINYL ESTRADIOL
     Indication: ACNE
  28. SKELAXIN [Concomitant]
     Active Substance: METAXALONE
     Dosage: 800 MG, QID
     Route: 048
  29. PREDNISONE. [Concomitant]
     Active Substance: PREDNISONE
     Dosage: 5 MG, UNK
     Route: 048
  30. VICTOZA [Concomitant]
     Active Substance: LIRAGLUTIDE

REACTIONS (6)
  - Injury [None]
  - Cerebral infarction [None]
  - Pain [None]
  - Pulmonary embolism [Recovered/Resolved]
  - Dyspnoea [Recovered/Resolved]
  - Thrombotic stroke [None]

NARRATIVE: CASE EVENT DATE: 20100515
